FAERS Safety Report 7934898-7 (Version None)
Quarter: 2011Q4

REPORT INFORMATION
  Report Type: 
  Country: None (occurrence: None)
  Receive Date: 20111122
  Receipt Date: 20111116
  Transmission Date: 20120403
  Serious: Yes (Death, Hospitalization)
  Sender: FDA-Public Use
  Company Number: CA-BRISTOL-MYERS SQUIBB COMPANY-14503700

PATIENT
  Age: 62 Year
  Sex: Female

DRUGS (8)
  1. VITAMIN TAB [Concomitant]
  2. ORENCIA [Suspect]
     Indication: RHEUMATOID ARTHRITIS
     Dosage: 29OT07;12NV;11DC;7JN8;4FB;3,31MR;28AR;26MY;23JN;23JL;19AG;16SP;23OC;24N;16DC;12JN9,29AP11,25JLINF:50
     Route: 042
     Dates: start: 20071015
  3. PREDNISONE TAB [Concomitant]
  4. METHOTREXATE [Concomitant]
  5. PRILOSEC [Concomitant]
  6. RAMIPRIL [Concomitant]
  7. FOLIC ACID [Concomitant]
  8. CALCIUM [Concomitant]

REACTIONS (13)
  - COLON CANCER [None]
  - SEPSIS [None]
  - POOR QUALITY SLEEP [None]
  - VOMITING [None]
  - ARTHRALGIA [None]
  - DECREASED APPETITE [None]
  - CHILLS [None]
  - NASOPHARYNGITIS [None]
  - JOINT STIFFNESS [None]
  - ABDOMINAL PAIN UPPER [None]
  - RHEUMATOID ARTHRITIS [None]
  - COUGH [None]
  - DEATH [None]
